FAERS Safety Report 9300838 (Version 2)
Quarter: 2013Q4

REPORT INFORMATION
  Report Type: Spontaneous
  Country: US (occurrence: US)
  Receive Date: 20130521
  Receipt Date: 20131001
  Transmission Date: 20140711
  Serious: No
  Sender: FDA-Public Use
  Company Number: US-JNJFOC-20130505405

PATIENT
  Age: 37 Year
  Sex: Female
  Weight: 101.61 kg

DRUGS (3)
  1. DURAGESIC [Suspect]
     Indication: COMPLEX REGIONAL PAIN SYNDROME
     Route: 062
     Dates: start: 2011
  2. DURAGESIC [Suspect]
     Indication: COMPLEX REGIONAL PAIN SYNDROME
     Route: 062
     Dates: start: 2011, end: 2011
  3. VICODIN [Concomitant]
     Indication: PAIN
     Route: 048
     Dates: start: 2013

REACTIONS (3)
  - Drug ineffective [Not Recovered/Not Resolved]
  - Flushing [Unknown]
  - Wrong technique in drug usage process [Unknown]
